FAERS Safety Report 5306631-9 (Version None)
Quarter: 2007Q2

REPORT INFORMATION
  Report Type: 
  Country: None (occurrence: None)
  Receive Date: 20070424
  Receipt Date: 20070412
  Transmission Date: 20071010
  Serious: Yes (Disabling, Other)
  Sender: FDA-Public Use
  Company Number: FR-PFIZER INC-2007026375

PATIENT
  Sex: Female
  Weight: 61 kg

DRUGS (3)
  1. CHAMPIX [Suspect]
     Indication: EX-SMOKER
     Route: 048
     Dates: start: 20070317, end: 20070326
  2. CHAMPIX [Suspect]
     Dosage: DAILY DOSE:1MG
     Route: 048
     Dates: start: 20070309, end: 20070316
  3. VALSARTAN [Concomitant]
     Indication: HYPERTENSION
     Route: 048

REACTIONS (4)
  - CHEST PAIN [None]
  - DYSPNOEA [None]
  - FATIGUE [None]
  - WHEEZING [None]
